FAERS Safety Report 11539231 (Version 1)
Quarter: 2015Q3

REPORT INFORMATION
  Report Type: Spontaneous
  Country: US (occurrence: None)
  Receive Date: 20150922
  Receipt Date: 20150922
  Transmission Date: 20151125
  Serious: Yes (Other)
  Sender: FDA-Public Use
  Company Number: None

PATIENT
  Age: 58 Year
  Sex: Male
  Weight: 61.24 kg

DRUGS (1)
  1. CORTISONE [Suspect]
     Active Substance: CORTISONE\HYDROCORTISONE
     Indication: TENDONITIS
     Route: 030

REACTIONS (3)
  - Dyspnoea [None]
  - Insomnia [None]
  - Hiccups [None]

NARRATIVE: CASE EVENT DATE: 20150917
